FAERS Safety Report 4745849-0 (Version None)
Quarter: 2005Q3

REPORT INFORMATION
  Report Type: 
  Country: None (occurrence: None)
  Receive Date: 20050816
  Receipt Date: 20050801
  Transmission Date: 20060218
  Serious: Yes (Other)
  Sender: FDA-Public Use
  Company Number: US-JNJFOC-20050803527

PATIENT
  Age: 36 Year
  Sex: Female

DRUGS (5)
  1. INFLIXIMAB [Suspect]
     Route: 042
  2. INFLIXIMAB [Suspect]
     Indication: RHEUMATOID ARTHRITIS
     Route: 042
  3. PREDNISONE [Concomitant]
  4. METHOTREXATE [Concomitant]
  5. LEFLUNOMIDE [Concomitant]

REACTIONS (1)
  - CEREBRAL TOXOPLASMOSIS [None]
